FAERS Safety Report 5223088-7 (Version None)
Quarter: 2007Q1

REPORT INFORMATION
  Report Type: 
  Country: None (occurrence: None)
  Receive Date: 20070122
  Receipt Date: 20070111
  Transmission Date: 20070707
  Serious: Yes (Death)
  Sender: FDA-Public Use
  Company Number: 151812ISR

PATIENT
  Age: 28 Year
  Sex: Female

DRUGS (4)
  1. CITALOPRAM HYDROBROMIDE [Suspect]
     Indication: DEPRESSION
     Dosage: 30 MG (30 MG, 1 IN 1 D) ORAL
     Route: 048
  2. HALOPERIDOL [Suspect]
     Indication: DEPRESSION
     Dosage: 10 MG (5 MG, 2 IN 1 D) ORAL
     Route: 048
  3. CLOZAPINE [Suspect]
     Indication: SCHIZOPHRENIA
     Dosage: 400 MG (400 MG, 1 IN 1 D) ORAL
     Route: 048
     Dates: start: 20020301
  4. LITHIUM CARBONATE [Suspect]
     Indication: DEPRESSION
     Dosage: 900 MG (900 MG, 1 IN 1 D) ORAL
     Route: 048

REACTIONS (5)
  - CYANOSIS [None]
  - MYOCARDIAL INFARCTION [None]
  - NEUTROPHIL COUNT INCREASED [None]
  - VENTRICULAR HYPERTROPHY [None]
  - WHITE BLOOD CELL COUNT INCREASED [None]
